FAERS Safety Report 11513042 (Version 1)
Quarter: 2015Q3

REPORT INFORMATION
  Report Type: Spontaneous
  Country: US (occurrence: US)
  Receive Date: 20150903
  Receipt Date: 20150903
  Transmission Date: 20151125
  Serious: No
  Sender: FDA-Public Use
  Company Number: US-ELI_LILLY_AND_COMPANY-US201209005956

PATIENT
  Sex: Female

DRUGS (1)
  1. CYMBALTA [Suspect]
     Active Substance: DULOXETINE HYDROCHLORIDE
     Indication: PAIN
     Dosage: 60 MG, QD
     Dates: start: 201209, end: 20120916

REACTIONS (9)
  - Pruritus [Recovering/Resolving]
  - Drug ineffective [Recovered/Resolved]
  - Somnolence [Unknown]
  - Off label use [Unknown]
  - Dizziness [Not Recovered/Not Resolved]
  - Urticaria [Recovering/Resolving]
  - Hypersensitivity [Unknown]
  - Piloerection [Unknown]
  - Rash [Recovering/Resolving]
